FAERS Safety Report 5679232-0 (Version None)
Quarter: 2008Q1

REPORT INFORMATION
  Report Type: 
  Country: None (occurrence: None)
  Receive Date: 20080325
  Receipt Date: 20080324
  Transmission Date: 20080703
  Serious: Yes (Hospitalization)
  Sender: FDA-Public Use
  Company Number: US-BRISTOL-MYERS SQUIBB COMPANY-14123681

PATIENT

DRUGS (1)
  1. KENALOG-40 [Suspect]
     Dosage: OTHER LOT# 7L30353 AND EXPIRATION DATE 10/2009

REACTIONS (2)
  - BACK PAIN [None]
  - PYREXIA [None]
